FAERS Safety Report 5834869-0 (Version None)
Quarter: 2008Q3

REPORT INFORMATION
  Report Type: 
  Country: None (occurrence: None)
  Receive Date: 20080805
  Receipt Date: 20080805
  Transmission Date: 20090109
  Serious: Yes (Hospitalization)
  Sender: FDA-Public Use
  Company Number: None

PATIENT
  Sex: Female
  Weight: 64.5 kg

DRUGS (3)
  1. FLUOROURACIL [Suspect]
     Dosage: 4060 MG
     Dates: start: 20080721, end: 20080721
  2. LEUCOVORIN CALCIUM [Suspect]
     Dosage: 700 MG
     Dates: end: 20080721
  3. ELOXATIN [Suspect]
     Dosage: 113.75 MG

REACTIONS (2)
  - CHEST PAIN [None]
  - MYOCARDIAL ISCHAEMIA [None]
